FAERS Safety Report 7036226-0 (Version None)
Quarter: 2010Q4

REPORT INFORMATION
  Report Type: 
  Country: None (occurrence: None)
  Receive Date: 20101008
  Receipt Date: 20101001
  Transmission Date: 20110411
  Serious: Yes (Hospitalization)
  Sender: FDA-Public Use
  Company Number: DE-TYCO HEALTHCARE/MALLINCKRODT-T201002069

PATIENT
  Age: 46 Year
  Sex: Male
  Weight: 83 kg

DRUGS (2)
  1. EXALGO [Suspect]
     Indication: PAIN
     Dosage: 15 MG, QD
     Route: 048
     Dates: start: 20081010, end: 20081017
  2. NORSPAN                            /00444001/ [Concomitant]
     Indication: PAIN
     Dosage: UNK
     Route: 062
     Dates: start: 20080901, end: 20081010

REACTIONS (5)
  - CHILLS [None]
  - HYPERHIDROSIS [None]
  - NOCTURIA [None]
  - RESTLESSNESS [None]
  - SLEEP DISORDER [None]
